FAERS Safety Report 6959356-8 (Version None)
Quarter: 2010Q3

REPORT INFORMATION
  Report Type: 
  Country: None (occurrence: None)
  Receive Date: 20100831
  Receipt Date: 20100831
  Transmission Date: 20110219
  Serious: No
  Sender: FDA-Public Use
  Company Number: None

PATIENT
  Age: 52 Year
  Sex: Female
  Weight: 68.0396 kg

DRUGS (1)
  1. EVAMIST [Suspect]
     Indication: HORMONE REPLACEMENT THERAPY
     Dosage: 2 SPRAYS 1 X DAY TRANSDERMAL
     Route: 062
     Dates: start: 20100430, end: 20100810

REACTIONS (1)
  - BREAST DISCOLOURATION [None]
